FAERS Safety Report 9512659 (Version 1)
Quarter: 2013Q1

REPORT INFORMATION
  Report Type: Spontaneous
  Country: US (occurrence: None)
  Receive Date: 20130305
  Receipt Date: 20130305
  Transmission Date: 20140127
  Serious: Yes (Other)
  Sender: FDA-Public Use
  Company Number: 163-21880-12100854

PATIENT
  Age: 83 Year
  Sex: Male
  Weight: 81.65 kg

DRUGS (3)
  1. REVLIMID(LENALIDOMIDE)(15 MILLIGRAM, CAPSULES) [Suspect]
     Indication: PLASMA CELL MYELOMA
     Dosage: 15 MG, 20 IN 28 D, PO
     Route: 048
     Dates: start: 200812
  2. ULORIC [Concomitant]
  3. ASPIRIN [Concomitant]

REACTIONS (1)
  - Drug dose omission [None]
